FAERS Safety Report 5800177-7 (Version None)
Quarter: 2008Q3

REPORT INFORMATION
  Report Type: 
  Country: None (occurrence: None)
  Receive Date: 20080703
  Receipt Date: 20080702
  Transmission Date: 20090109
  Serious: Yes (Other)
  Sender: FDA-Public Use
  Company Number: A0675309A

PATIENT
  Age: 58 Year
  Sex: Female

DRUGS (1)
  1. ALLI [Suspect]
     Indication: WEIGHT LOSS DIET
     Route: 048
     Dates: start: 20070616

REACTIONS (29)
  - ABDOMINAL PAIN UPPER [None]
  - ASTHMA [None]
  - BACK PAIN [None]
  - DRUG INEFFECTIVE [None]
  - DYSPNOEA [None]
  - FEELING ABNORMAL [None]
  - FLATULENCE [None]
  - FRUSTRATION [None]
  - GASTRIC DISORDER [None]
  - GASTROENTERITIS VIRAL [None]
  - GASTROINTESTINAL DISORDER [None]
  - INITIAL INSOMNIA [None]
  - INSOMNIA [None]
  - IRRITABLE BOWEL SYNDROME [None]
  - LUNG DISORDER [None]
  - MALAISE [None]
  - MUSCLE TIGHTNESS [None]
  - MYALGIA [None]
  - NOCTURIA [None]
  - OEDEMA PERIPHERAL [None]
  - PAIN IN EXTREMITY [None]
  - RECTAL DISCHARGE [None]
  - SLEEP DISORDER [None]
  - STEATORRHOEA [None]
  - STOMACH DISCOMFORT [None]
  - STRESS [None]
  - THERAPEUTIC RESPONSE UNEXPECTED [None]
  - WEIGHT FLUCTUATION [None]
  - WEIGHT INCREASED [None]
